FAERS Safety Report 24033385 (Version 1)
Quarter: 2024Q3

REPORT INFORMATION
  Report Type: Spontaneous
  Country: US (occurrence: US)
  Receive Date: 20240701
  Receipt Date: 20240701
  Transmission Date: 20241017
  Serious: No
  Sender: UCB
  Company Number: US-UCBSA-2023029439

PATIENT
  Age: 28 Year
  Sex: Female

DRUGS (5)
  1. MIDAZOLAM [Suspect]
     Active Substance: MIDAZOLAM
     Indication: Hypoxia
     Dosage: 3 MG/H
  2. MIDAZOLAM [Suspect]
     Active Substance: MIDAZOLAM
     Indication: Off label use
  3. FENTANYL [Concomitant]
     Active Substance: FENTANYL\FENTANYL CITRATE
     Indication: Hypoxia
     Dosage: 800 MCG/HOUR
  4. DEXMEDETOMIDINE [Concomitant]
     Active Substance: DEXMEDETOMIDINE
     Indication: Hypoxia
     Dosage: 1.7 MCG/KG/H
  5. OLANZAPINE [Concomitant]
     Active Substance: OLANZAPINE
     Indication: Hypoxia
     Dosage: 5 MILLIGRAM, AT NIGHT
     Route: 042

REACTIONS (1)
  - No adverse event [Unknown]
